FAERS Safety Report 11194762 (Version 1)
Quarter: 2015Q2

REPORT INFORMATION
  Report Type: Spontaneous
  Country: US (occurrence: US)
  Receive Date: 20150617
  Receipt Date: 20150617
  Transmission Date: 20150821
  Serious: Yes (Other)
  Sender: FDA-Public Use
  Company Number: US-AMGEN-USASP2015057520

PATIENT
  Age: 72 Year
  Sex: Female

DRUGS (9)
  1. ALEVE [Concomitant]
     Active Substance: NAPROXEN SODIUM
     Dosage: UNK UNK, QD, AS NEEDED
     Route: 048
  2. NAUZENE [Concomitant]
     Active Substance: DEXTROSE\FRUCTOSE\TRISODIUM CITRATE DIHYDRATE
     Indication: NAUSEA
     Dosage: 230 MG, UNK
  3. UNISOM SLEEP [Concomitant]
  4. SLIPPERY ELM [Concomitant]
     Indication: COUGH
     Dosage: UNK UNK, QD
     Route: 048
  5. ARIMIDEX [Concomitant]
     Active Substance: ANASTROZOLE
     Dosage: 1 MG, QD
     Route: 048
  6. FASLODEX [Concomitant]
     Active Substance: FULVESTRANT
  7. XGEVA [Suspect]
     Active Substance: DENOSUMAB
     Indication: PRODUCT USED FOR UNKNOWN INDICATION
     Dosage: UNK
     Route: 065
     Dates: start: 201501
  8. NAUZENE [Concomitant]
     Active Substance: DEXTROSE\FRUCTOSE\TRISODIUM CITRATE DIHYDRATE
     Indication: VOMITING
  9. CELERY SEED EXTRACT [Concomitant]

REACTIONS (16)
  - Nausea [Unknown]
  - Blood glucose increased [Unknown]
  - Cough [Unknown]
  - Breast pain [Unknown]
  - Carbohydrate antigen 27.29 increased [Unknown]
  - Purulent discharge [Recovered/Resolved]
  - Anion gap decreased [Unknown]
  - Vomiting [Unknown]
  - Breast haemorrhage [Unknown]
  - Mobility decreased [Unknown]
  - Carbohydrate antigen 15-3 increased [Unknown]
  - Cytopenia [Unknown]
  - Disease progression [Unknown]
  - Pain in extremity [Unknown]
  - Multiple sclerosis [Unknown]
  - Tumour marker increased [Not Recovered/Not Resolved]

NARRATIVE: CASE EVENT DATE: 201501
